FAERS Safety Report 18011064 (Version 1)
Quarter: 2020Q3

REPORT INFORMATION
  Report Type: Spontaneous
  Country: US (occurrence: US)
  Receive Date: 20200711
  Receipt Date: 20200711
  Transmission Date: 20201103
  Serious: Yes (Life-Threatening, Hospitalization, Other)
  Sender: FDA-Public Use
  Company Number: US-APOTEX-2020AP013173

PATIENT
  Age: 69 Year
  Sex: Male
  Weight: 109 kg

DRUGS (3)
  1. MELPHALAN. [Suspect]
     Active Substance: MELPHALAN
     Dosage: UNK
     Route: 065
     Dates: start: 20200606
  2. PROGRAF [Concomitant]
     Active Substance: TACROLIMUS
     Indication: IMMUNOSUPPRESSION
     Dosage: UNK
     Route: 065
  3. MELPHALAN. [Suspect]
     Active Substance: MELPHALAN
     Indication: PRODUCT USED FOR UNKNOWN INDICATION
     Dosage: UNK
     Route: 065
     Dates: start: 20200605

REACTIONS (1)
  - Atrial fibrillation [Recovering/Resolving]

NARRATIVE: CASE EVENT DATE: 20200608
